FAERS Safety Report 7266624-1 (Version None)
Quarter: 2011Q1

REPORT INFORMATION
  Report Type: 
  Country: None (occurrence: None)
  Receive Date: 20110131
  Receipt Date: 20110124
  Transmission Date: 20110831
  Serious: Yes (Hospitalization, Disabling)
  Sender: FDA-Public Use
  Company Number: JP-BRISTOL-MYERS SQUIBB COMPANY-15476393

PATIENT
  Age: 74 Year
  Sex: Female

DRUGS (5)
  1. BROTIZOLAM [Concomitant]
     Dosage: TAB
     Route: 048
  2. BLOPRESS [Concomitant]
     Dosage: TAB
     Route: 048
  3. ASPIRIN [Concomitant]
     Dosage: TAB
     Route: 048
  4. HYDREA [Suspect]
     Indication: ESSENTIAL THROMBOCYTHAEMIA
     Route: 048
     Dates: start: 20060101, end: 20100702
  5. AMLODIPINE [Concomitant]
     Dosage: TAB
     Route: 048

REACTIONS (4)
  - DRY SKIN [None]
  - PIGMENTATION DISORDER [None]
  - NAIL PIGMENTATION [None]
  - SKIN ULCER [None]
